FAERS Safety Report 9882593 (Version 5)
Quarter: 2014Q2

REPORT INFORMATION
  Report Type: Report from Study
  Country: US (occurrence: US)
  Receive Date: 20140207
  Receipt Date: 20140521
  Transmission Date: 20141212
  Serious: Yes (Death, Life-Threatening, Hospitalization)
  Sender: FDA-Public Use
  Company Number: US-ACTELION-A-US2014-94446

PATIENT
  Age: 67 Year
  Sex: Female

DRUGS (4)
  1. VELETRI [Suspect]
     Indication: PULMONARY ARTERIAL HYPERTENSION
     Dosage: 36 NG/KG, PER MIN
     Route: 042
     Dates: end: 20140414
  2. VELETRI [Suspect]
     Dosage: 21 NG/KG, PER MIN
     Route: 042
     Dates: start: 20131129
  3. CIALIS [Concomitant]
  4. ADCIRCA [Concomitant]

REACTIONS (4)
  - Respiratory failure [Fatal]
  - Pneumonia [Unknown]
  - Pulmonary arterial hypertension [Unknown]
  - Oedema [Unknown]
